FAERS Safety Report 6127929-0 (Version None)
Quarter: 2009Q1

REPORT INFORMATION
  Report Type: 
  Country: None (occurrence: None)
  Receive Date: 20090319
  Receipt Date: 20090305
  Transmission Date: 20090719
  Serious: Yes (Other)
  Sender: FDA-Public Use
  Company Number: 2009S1003573

PATIENT
  Age: 66 Year
  Sex: Male

DRUGS (5)
  1. CINNARIZINE (CINNARIZINE) [Suspect]
     Indication: ANGIOEDEMA
  2. AMLODIPINE [Suspect]
     Indication: HYPERTENSION
     Dosage: 5 MG;DAILY;ORAL, 5 MG;DAILY;ORAL, 10 MG;DAILY, ORAL, MG;DAILY, ORAL
     Route: 048
     Dates: start: 20090110, end: 20090123
  3. AMLODIPINE [Suspect]
     Indication: HYPERTENSION
     Dosage: 5 MG;DAILY;ORAL, 5 MG;DAILY;ORAL, 10 MG;DAILY, ORAL, MG;DAILY, ORAL
     Route: 048
     Dates: start: 20090127, end: 20090130
  4. AMLODIPINE [Suspect]
     Indication: HYPERTENSION
     Dosage: 5 MG;DAILY;ORAL, 5 MG;DAILY;ORAL, 10 MG;DAILY, ORAL, MG;DAILY, ORAL
     Route: 048
     Dates: start: 20090130, end: 20090220
  5. AMLODIPINE [Suspect]
     Indication: HYPERTENSION
     Dosage: 5 MG;DAILY;ORAL, 5 MG;DAILY;ORAL, 10 MG;DAILY, ORAL, MG;DAILY, ORAL
     Route: 048
     Dates: start: 20090220, end: 20090223

REACTIONS (8)
  - BLOOD PRESSURE INCREASED [None]
  - CONSTIPATION [None]
  - DISCOMFORT [None]
  - DRUG INTERACTION [None]
  - FEELING COLD [None]
  - JOINT SWELLING [None]
  - OEDEMA PERIPHERAL [None]
  - PRURITUS [None]
